FAERS Safety Report 14322370 (Version 1)
Quarter: 2017Q4

REPORT INFORMATION
  Report Type: Spontaneous
  Country: DZ (occurrence: DZ)
  Receive Date: 20171225
  Receipt Date: 20171225
  Transmission Date: 20180321
  Serious: Yes (Other)
  Sender: FDA-Public Use
  Company Number: PHHY2017DZ188865

PATIENT
  Age: 47 Year
  Sex: Female

DRUGS (2)
  1. BROMOCRIPTINE SANDOZ [Suspect]
     Active Substance: BROMOCRIPTINE
     Indication: PRODUCT USED FOR UNKNOWN INDICATION
     Route: 065
  2. DOSTINEX [Suspect]
     Active Substance: CABERGOLINE
     Indication: PRODUCT USED FOR UNKNOWN INDICATION
     Route: 065

REACTIONS (3)
  - Angina pectoris [Unknown]
  - Pulmonary mass [Unknown]
  - Pericarditis [Unknown]
